FAERS Safety Report 6713240-3 (Version None)
Quarter: 2010Q2

REPORT INFORMATION
  Report Type: 
  Country: None (occurrence: None)
  Receive Date: 20100506
  Receipt Date: 20100503
  Transmission Date: 20101027
  Serious: Yes (Death, Hospitalization)
  Sender: FDA-Public Use
  Company Number: PHEH2009US18912

PATIENT
  Sex: Female

DRUGS (8)
  1. EXJADE [Suspect]
     Indication: MYELODYSPLASTIC SYNDROME
     Dosage: 1375 MG DAILY
     Route: 048
     Dates: start: 20090401
  2. EXJADE [Suspect]
     Indication: IRON OVERLOAD
  3. BONIVA [Concomitant]
     Dosage: 3 MG, QMO
  4. GABAPENTIN [Concomitant]
     Dosage: 500 MG, TID
     Route: 048
  5. FUROSEMIDE [Concomitant]
     Dosage: 80 MG DAILY
     Route: 048
  6. POTASSIUM CHLORIDE [Concomitant]
     Dosage: 10 MEQ, BID
     Route: 048
  7. NORTRIPTYLINE HCL [Concomitant]
     Dosage: 25 MG, QHS
  8. HYDROCODONE BITARTRATE [Concomitant]
     Dosage: 5/500

REACTIONS (6)
  - ABDOMINAL PAIN [None]
  - ASTHENIA [None]
  - DEATH [None]
  - DIARRHOEA [None]
  - NAUSEA [None]
  - VOMITING [None]
